FAERS Safety Report 8472366-7 (Version None)
Quarter: 2012Q2

REPORT INFORMATION
  Report Type: 
  Country: None (occurrence: None)
  Receive Date: 20120627
  Receipt Date: 20120621
  Transmission Date: 20120825
  Serious: Yes (Life-Threatening, Hospitalization)
  Sender: FDA-Public Use
  Company Number: US-ACTELION-A-US2012-65787

PATIENT

DRUGS (4)
  1. TRACLEER [Suspect]
     Indication: PULMONARY ARTERIAL HYPERTENSION
     Dosage: UNK
     Route: 048
     Dates: start: 20031106
  2. LASIX [Concomitant]
  3. COUMADIN [Concomitant]
  4. ASPIRIN [Concomitant]

REACTIONS (5)
  - CEREBROVASCULAR ACCIDENT [None]
  - SPEECH DISORDER [None]
  - POSTURE ABNORMAL [None]
  - TRANSIENT ISCHAEMIC ATTACK [None]
  - DYSPNOEA [None]
